FAERS Safety Report 13360067 (Version 1)
Quarter: 2017Q1

REPORT INFORMATION
  Report Type: Spontaneous
  Country: IT (occurrence: IT)
  Receive Date: 20170322
  Receipt Date: 20170322
  Transmission Date: 20170429
  Serious: Yes (Hospitalization, Other)
  Sender: FDA-Public Use
  Company Number: PHHY2017IT038920

PATIENT
  Age: 47 Year
  Sex: Female

DRUGS (1)
  1. DEFEROXAMINE [Suspect]
     Active Substance: DEFEROXAMINE\DEFEROXAMINE MESYLATE
     Indication: THALASSAEMIA
     Route: 058

REACTIONS (10)
  - Tachycardia [Unknown]
  - Liver abscess [Recovered/Resolved]
  - Abdominal abscess [Recovering/Resolving]
  - Anaemia [Unknown]
  - Pyrexia [Unknown]
  - Hepatomegaly [Unknown]
  - Klebsiella infection [Recovered/Resolved]
  - Abdominal pain lower [Unknown]
  - Hypotension [Unknown]
  - Splenomegaly [Unknown]
